FAERS Safety Report 6073005-5 (Version None)
Quarter: 2009Q1

REPORT INFORMATION
  Report Type: 
  Country: None (occurrence: None)
  Receive Date: 20090209
  Receipt Date: 20090209
  Transmission Date: 20090719
  Serious: Yes (Death, Life-Threatening, Hospitalization, Disabling)
  Sender: FDA-Public Use
  Company Number: None

PATIENT
  Sex: Female
  Weight: 61.2356 kg

DRUGS (3)
  1. NAMENDA [Suspect]
     Indication: DEMENTIA
     Dosage: 5-10 MG BID PO
     Route: 048
     Dates: start: 20070901, end: 20080327
  2. SPIRONOLACTONE [Concomitant]
  3. LOVASTATIN [Concomitant]

REACTIONS (5)
  - ANAEMIA [None]
  - CEREBRAL HAEMORRHAGE [None]
  - LEUKOPENIA [None]
  - NO THERAPEUTIC RESPONSE [None]
  - THROMBOCYTOPENIA [None]
